FAERS Safety Report 6369010-1 (Version None)
Quarter: 2009Q3

REPORT INFORMATION
  Report Type: 
  Country: None (occurrence: None)
  Receive Date: 20090922
  Receipt Date: 20090916
  Transmission Date: 20100115
  Serious: Yes (Hospitalization)
  Sender: FDA-Public Use
  Company Number: DE-BAXTER-2009BH014274

PATIENT
  Age: 65 Year
  Sex: Female

DRUGS (4)
  1. ENDOXAN BAXTER [Suspect]
     Indication: B-CELL LYMPHOMA
     Dosage: 400
     Route: 042
  2. FLUDARA [Suspect]
     Indication: B-CELL LYMPHOMA
     Dosage: 40
     Route: 042
     Dates: start: 20090201, end: 20090301
  3. MABTHERA [Suspect]
     Indication: B-CELL LYMPHOMA
     Dosage: 6-10MG
     Route: 042
  4. COTRIM [Concomitant]
     Indication: INFECTION PROPHYLAXIS
     Route: 065

REACTIONS (2)
  - MYOPATHY [None]
  - POLYNEUROPATHY [None]
